FAERS Safety Report 13285250 (Version 2)
Quarter: 2022Q1

REPORT INFORMATION
  Report Type: Spontaneous
  Country: US (occurrence: US)
  Receive Date: 20170301
  Receipt Date: 20220210
  Transmission Date: 20220424
  Serious: No
  Sender: FDA-Public Use
  Company Number: US-PFIZER INC-2017081249

PATIENT
  Sex: Male

DRUGS (7)
  1. BACITRACIN [Suspect]
     Active Substance: BACITRACIN
     Dosage: UNK
  2. NEOMYCIN SULFATE [Suspect]
     Active Substance: NEOMYCIN SULFATE
     Dosage: UNK
  3. NAPROSYN [Suspect]
     Active Substance: NAPROXEN
     Dosage: UNK
  4. ACETAMINOPHEN [Suspect]
     Active Substance: ACETAMINOPHEN
     Dosage: UNK
  5. GRAMICIDIN [Suspect]
     Active Substance: GRAMICIDIN
     Dosage: UNK
  6. POLYMYXIN [Suspect]
     Active Substance: POLYMYXIN
  7. NAPROXEN [Suspect]
     Active Substance: NAPROXEN

REACTIONS (1)
  - Drug hypersensitivity [Unknown]
